FAERS Safety Report 10510057 (Version 1)
Quarter: 2014Q4

REPORT INFORMATION
  Report Type: Spontaneous
  Country: US (occurrence: None)
  Receive Date: 20141008
  Receipt Date: 20141008
  Transmission Date: 20150528
  Serious: Yes (Hospitalization)
  Sender: FDA-Public Use
  Company Number: QSC-2014-0677

PATIENT
  Age: 38 Year
  Sex: Female

DRUGS (6)
  1. H.P. ACTHAR [Suspect]
     Active Substance: CORTICOTROPIN
     Indication: MULTIPLE SCLEROSIS
     Route: 030
     Dates: start: 2014
  2. TECFIDERA (DIMETHYL FUMARATE) [Concomitant]
  3. TIZANIDINE (TIZANIDINE) [Concomitant]
     Active Substance: TIZANIDINE
  4. NORVASC [Concomitant]
     Active Substance: AMLODIPINE BESYLATE
  5. FLEXERIL /00428402/ (CYCLOBENZAPRINE HYDROCHLORIDE) [Concomitant]
  6. GABAPENTIN (GABAPENTIN) [Concomitant]
     Active Substance: GABAPENTIN

REACTIONS (1)
  - Epilepsy [None]

NARRATIVE: CASE EVENT DATE: 201407
